FAERS Safety Report 15861583 (Version 1)
Quarter: 2019Q1

REPORT INFORMATION
  Report Type: Report from Study
  Country: ES (occurrence: ES)
  Receive Date: 20190124
  Receipt Date: 20190124
  Transmission Date: 20190417
  Serious: Yes (Hospitalization, Other)
  Sender: FDA-Public Use
  Company Number: ES-ACCORD-103331

PATIENT
  Age: 85 Year
  Sex: Female

DRUGS (5)
  1. SERTRALINE [Interacting]
     Active Substance: SERTRALINE HYDROCHLORIDE
     Indication: PRODUCT USED FOR UNKNOWN INDICATION
     Dosage: 50 MG DAY
     Route: 048
     Dates: start: 20150828, end: 20170617
  2. PREDNISONE. [Concomitant]
     Active Substance: PREDNISONE
     Dosage: 1 CP ALTERNATE DAYS WITH 1/2 CP
     Route: 048
     Dates: start: 20140101
  3. BONVIVA [Concomitant]
     Active Substance: IBANDRONATE SODIUM
     Dosage: 150 MG PER MONTH
     Dates: start: 20140101
  4. QUETIAPINE. [Suspect]
     Active Substance: QUETIAPINE
     Indication: PRODUCT USED FOR UNKNOWN INDICATION
     Dosage: 0-0-1
     Route: 048
     Dates: start: 20150828
  5. SINEMET PLUS [Interacting]
     Active Substance: CARBIDOPA\LEVODOPA
     Indication: PRODUCT USED FOR UNKNOWN INDICATION
     Dosage: 1-1/2-1
     Route: 048
     Dates: start: 20150828

REACTIONS (3)
  - Acute kidney injury [Recovered/Resolved]
  - Dehydration [Recovered/Resolved]
  - Drug interaction [Unknown]

NARRATIVE: CASE EVENT DATE: 20170617
